FAERS Safety Report 19025955 (Version 1)
Quarter: 2021Q1

REPORT INFORMATION
  Report Type: Spontaneous
  Country: US (occurrence: US)
  Receive Date: 20210316
  Receipt Date: 20210316
  Transmission Date: 20210420
  Serious: Yes (Hospitalization)
  Sender: FDA-Public Use
  Company Number: None

PATIENT
  Age: 80 Year
  Sex: Male

DRUGS (6)
  1. ATROVASTATIN 10MG TABLETS [Concomitant]
  2. CALICUM 600MG W/P TABLETS [Concomitant]
  3. COLACE 100 MG CAPSULES [Concomitant]
  4. LISINOPRIL 10 MG TABLETS [Concomitant]
     Active Substance: LISINOPRIL
  5. ERLEADA [Suspect]
     Active Substance: APALUTAMIDE
     Indication: PROSTATE CANCER
     Route: 048
     Dates: start: 20191202
  6. LEVOTHYROXINE 0?75MG TABLETS [Concomitant]

REACTIONS (1)
  - Myocardial infarction [None]

NARRATIVE: CASE EVENT DATE: 20210311
